FAERS Safety Report 16149027 (Version 2)
Quarter: 2019Q2

REPORT INFORMATION
  Report Type: Report from Study
  Country: US (occurrence: US)
  Receive Date: 20190402
  Receipt Date: 20190417
  Transmission Date: 20190711
  Serious: Yes (Death, Other)
  Sender: FDA-Public Use
  Company Number: US-BRISTOL-MYERS SQUIBB COMPANY-BMS-2019-032326

PATIENT
  Age: 61 Year
  Sex: Female
  Weight: 55.8 kg

DRUGS (3)
  1. HYDROCORTISONE. [Concomitant]
     Active Substance: HYDROCORTISONE
     Indication: PRODUCT USED FOR UNKNOWN INDICATION
     Dosage: UNK
     Route: 065
  2. NIVOLUMAB [Suspect]
     Active Substance: NIVOLUMAB
     Indication: ENDOMETRIAL ADENOCARCINOMA
     Dosage: 480 MILLIGRAM, TOTAL DOSE ADMINISTERED
     Route: 042
     Dates: start: 20181026, end: 20190201
  3. CABOZANTINIB [Suspect]
     Active Substance: CABOZANTINIB
     Indication: ENDOMETRIAL ADENOCARCINOMA
     Dosage: 1080 MILLIGRAM, TOTAL DOSE ADMINISTERED
     Route: 048
     Dates: start: 20181026, end: 20190214

REACTIONS (3)
  - Lymphocyte count decreased [Not Recovered/Not Resolved]
  - Malignant neoplasm progression [Fatal]
  - Gastrointestinal haemorrhage [Fatal]

NARRATIVE: CASE EVENT DATE: 20181108
